FAERS Safety Report 24892770 (Version 2)
Quarter: 2025Q2

REPORT INFORMATION
  Report Type: Spontaneous
  Country: JP (occurrence: JP)
  Receive Date: 20250128
  Receipt Date: 20250404
  Transmission Date: 20250716
  Serious: Yes (Other)
  Sender: GENMAB
  Company Number: JP-GENMAB-2024-02837

PATIENT
  Age: 76 Year
  Sex: Male

DRUGS (6)
  1. EPKINLY [Suspect]
     Active Substance: EPCORITAMAB-BYSP
     Indication: Diffuse large B-cell lymphoma refractory
     Route: 058
  2. PREDNISOLONE [Concomitant]
     Active Substance: PREDNISOLONE
     Indication: Prophylaxis
  3. RITUXIMAB [Concomitant]
     Active Substance: RITUXIMAB
  4. GEMCITABINE [Concomitant]
     Active Substance: GEMCITABINE
  5. CARBOPLATIN [Concomitant]
     Active Substance: CARBOPLATIN
  6. DEXAMETHASONE [Concomitant]
     Active Substance: DEXAMETHASONE

REACTIONS (4)
  - Hepatitis B reactivation [Unknown]
  - Diffuse large B-cell lymphoma refractory [Unknown]
  - COVID-19 pneumonia [Unknown]
  - Cytokine release syndrome [Unknown]
